FAERS Safety Report 4996137-9 (Version None)
Quarter: 2006Q2

REPORT INFORMATION
  Report Type: 
  Country: None (occurrence: None)
  Receive Date: 20060504
  Receipt Date: 20060421
  Transmission Date: 20061013
  Serious: Yes (Hospitalization, Disabling)
  Sender: FDA-Public Use
  Company Number: 34488

PATIENT
  Age: 21 Year
  Sex: Female

DRUGS (1)
  1. ALCAINE [Suspect]

REACTIONS (11)
  - BLINDNESS [None]
  - CONJUNCTIVAL HYPERAEMIA [None]
  - CORNEAL EPITHELIUM DEFECT [None]
  - CORNEAL INFILTRATES [None]
  - CORNEAL NEOVASCULARISATION [None]
  - DRUG ABUSER [None]
  - FACTITIOUS DISORDER [None]
  - KERATOPATHY [None]
  - MAJOR DEPRESSION [None]
  - SELF INJURIOUS BEHAVIOUR [None]
  - VISUAL ACUITY REDUCED [None]
